FAERS Safety Report 8129094-7 (Version None)
Quarter: 2012Q1

REPORT INFORMATION
  Report Type: 
  Country: None (occurrence: None)
  Receive Date: 20120210
  Receipt Date: 20110922
  Transmission Date: 20120608
  Serious: No
  Sender: FDA-Public Use
  Company Number: US-BRISTOL-MYERS SQUIBB COMPANY-16085565

PATIENT
  Age: 19 Year
  Sex: Female
  Weight: 68 kg

DRUGS (2)
  1. NAPROXEN [Concomitant]
  2. ORENCIA [Suspect]
     Indication: JUVENILE ARTHRITIS
     Dosage: SECOND INF ON 16SEP2011
     Route: 042
     Dates: start: 20110819

REACTIONS (2)
  - ARTHRITIS [None]
  - DRUG DOSE OMISSION [None]
